FAERS Safety Report 13635262 (Version 1)
Quarter: 2017Q2

REPORT INFORMATION
  Report Type: Spontaneous
  Country: US (occurrence: US)
  Receive Date: 20170531
  Receipt Date: 20170531
  Transmission Date: 20170830
  Serious: No
  Sender: FDA-Public Use
  Company Number: US-ASTELLAS-1708903

PATIENT
  Age: 63 Year
  Sex: Female

DRUGS (5)
  1. TARCEVA [Suspect]
     Active Substance: ERLOTINIB HYDROCHLORIDE
     Dosage: TAKE 1 HOUR BEFORE OR 2 HOURS AFTER MEALS
     Route: 048
  2. PEPCID [Concomitant]
     Active Substance: FAMOTIDINE
  3. LOVENOX [Concomitant]
     Active Substance: ENOXAPARIN SODIUM
  4. RESTASIS [Concomitant]
     Active Substance: CYCLOSPORINE
  5. TARCEVA [Suspect]
     Active Substance: ERLOTINIB HYDROCHLORIDE
     Indication: LUNG NEOPLASM MALIGNANT
     Dosage: TAKE 1 HOUR BEFORE OR 2 HOURS AFTER MEALS
     Route: 048

REACTIONS (1)
  - Rash [Unknown]
